FAERS Safety Report 4753972-X (Version None)
Quarter: 2005Q3

REPORT INFORMATION
  Report Type: 
  Country: None (occurrence: None)
  Receive Date: 20050826
  Receipt Date: 20050812
  Transmission Date: 20060218
  Serious: Yes (Disabling, Other)
  Sender: FDA-Public Use
  Company Number: 2005114475

PATIENT
  Age: 54 Year
  Sex: Male

DRUGS (6)
  1. VIAGRA [Suspect]
     Indication: ERECTILE DYSFUNCTION
     Dosage: 100 MG, 5 TIMES A MONTH)
  2. HYDROCHLOROTHIAZIDE [Concomitant]
  3. NORVASC [Concomitant]
  4. LIPITOR [Concomitant]
  5. CAPTOPRIL [Concomitant]
  6. ALPHAGAN [Concomitant]

REACTIONS (22)
  - ANEURYSM [None]
  - ARTERIOSCLEROTIC RETINOPATHY [None]
  - ARTHRALGIA [None]
  - BLINDNESS UNILATERAL [None]
  - BLOOD CREATININE INCREASED [None]
  - DIABETIC COMPLICATION [None]
  - DIABETIC NEUROPATHY [None]
  - DIABETIC RETINAL OEDEMA [None]
  - DIABETIC RETINOPATHY [None]
  - HEADACHE [None]
  - LACRIMATION INCREASED [None]
  - OPTIC ATROPHY [None]
  - OPTIC ISCHAEMIC NEUROPATHY [None]
  - PHOTOPSIA [None]
  - POST PROCEDURAL COMPLICATION [None]
  - RETINAL ANEURYSM [None]
  - RETINAL HAEMORRHAGE [None]
  - RETINAL ISCHAEMIA [None]
  - RETINAL SCAR [None]
  - SCOTOMA [None]
  - VITREOUS FLOATERS [None]
  - VITREOUS HAEMORRHAGE [None]
